FAERS Safety Report 7578536-4 (Version None)
Quarter: 2011Q2

REPORT INFORMATION
  Report Type: 
  Country: None (occurrence: None)
  Receive Date: 20110622
  Receipt Date: 20110603
  Transmission Date: 20111010
  Serious: Yes (Hospitalization, Other)
  Sender: FDA-Public Use
  Company Number: 2011SP007671

PATIENT
  Age: 29 Year
  Sex: Female
  Weight: 74.8435 kg

DRUGS (2)
  1. NUVARING [Suspect]
     Indication: CONTRACEPTION
     Dates: start: 20071101, end: 20090201
  2. VALTREX [Concomitant]

REACTIONS (9)
  - DEHYDRATION [None]
  - HERPES SIMPLEX [None]
  - SINUS BRADYCARDIA [None]
  - COSTOCHONDRITIS [None]
  - DEEP VEIN THROMBOSIS [None]
  - HYPOKALAEMIA [None]
  - MULTIPLE INJURIES [None]
  - OVARIAN CYST [None]
  - THROMBOPHLEBITIS [None]
